FAERS Safety Report 12313777 (Version 1)
Quarter: 2016Q2

REPORT INFORMATION
  Report Type: Spontaneous
  Country: US (occurrence: US)
  Receive Date: 20160428
  Receipt Date: 20160428
  Transmission Date: 20160815
  Serious: Yes (Hospitalization)
  Sender: FDA-Public Use
  Company Number: US-ALKERMES INC.-ALK-2015-000498

PATIENT

DRUGS (1)
  1. VIVITROL [Suspect]
     Active Substance: NALTREXONE
     Indication: PRODUCT USED FOR UNKNOWN INDICATION
     Dosage: 380 MG, QMO
     Route: 030

REACTIONS (16)
  - Depression suicidal [Recovering/Resolving]
  - Blood testosterone decreased [Recovering/Resolving]
  - Hormone level abnormal [Recovering/Resolving]
  - Agitation [Recovering/Resolving]
  - Anxiety [Recovering/Resolving]
  - Depersonalisation/derealisation disorder [Recovering/Resolving]
  - Depression [Recovering/Resolving]
  - Suicidal ideation [Recovering/Resolving]
  - Panic attack [Recovering/Resolving]
  - Malaise [Recovering/Resolving]
  - Derealisation [Recovering/Resolving]
  - Morbid thoughts [Recovering/Resolving]
  - Hypersensitivity [Recovering/Resolving]
  - Crying [Recovering/Resolving]
  - Activities of daily living impaired [Recovering/Resolving]
  - Weight decreased [Recovering/Resolving]

NARRATIVE: CASE EVENT DATE: 2011
